FAERS Safety Report 25638904 (Version 1)
Quarter: 2025Q3

REPORT INFORMATION
  Report Type: Spontaneous
  Country: US (occurrence: US)
  Receive Date: 20250804
  Receipt Date: 20250804
  Transmission Date: 20251021
  Serious: No
  Sender: VERTEX
  Company Number: US-VERTEX PHARMACEUTICALS DOOEL SKOPJE-2025-012561

PATIENT
  Age: 15 Year

DRUGS (2)
  1. TRIKAFTA [Suspect]
     Active Substance: ELEXACAFTOR\IVACAFTOR\TEZACAFTOR
     Indication: Cystic fibrosis
     Route: 048
  2. TRIKAFTA [Suspect]
     Active Substance: ELEXACAFTOR\IVACAFTOR\TEZACAFTOR
     Dosage: ONE OF DAILY TABLETS AT NIGHT
     Route: 048

REACTIONS (7)
  - Brain fog [Recovered/Resolved]
  - Loss of consciousness [Recovered/Resolved]
  - Anger [Recovered/Resolved]
  - Impulsive behaviour [Recovered/Resolved]
  - Depression [Recovered/Resolved]
  - Psychiatric symptom [Recovered/Resolved]
  - Intentional self-injury [Recovered/Resolved]
